FAERS Safety Report 6330230-3 (Version None)
Quarter: 2009Q3

REPORT INFORMATION
  Report Type: 
  Country: None (occurrence: None)
  Receive Date: 20090827
  Receipt Date: 20090518
  Transmission Date: 20100115
  Serious: No
  Sender: FDA-Public Use
  Company Number: US-KINGPHARMUSA00001-K200900611

PATIENT
  Sex: Male

DRUGS (1)
  1. FLECTOR [Suspect]
     Dosage: 1 PATCH, BID
     Route: 061
     Dates: start: 20090502, end: 20090501

REACTIONS (3)
  - APPLICATION SITE PAIN [None]
  - APPLICATION SITE VESICLES [None]
  - MUSCULOSKELETAL PAIN [None]
